FAERS Safety Report 7279740-5 (Version None)
Quarter: 2011Q1

REPORT INFORMATION
  Report Type: 
  Country: None (occurrence: None)
  Receive Date: 20110208
  Receipt Date: 20110128
  Transmission Date: 20110831
  Serious: Yes (Hospitalization, Other)
  Sender: FDA-Public Use
  Company Number: US-EISAI INC-E3810-04424-SPO-US

PATIENT
  Sex: Male

DRUGS (1)
  1. ACIPHEX [Suspect]
     Route: 048
     Dates: start: 20030601

REACTIONS (2)
  - FALL [None]
  - NEPHROLITHIASIS [None]
